FAERS Safety Report 16077434 (Version 2)
Quarter: 2019Q2

REPORT INFORMATION
  Report Type: Report from Study
  Country: GB (occurrence: GB)
  Receive Date: 20190315
  Receipt Date: 20190405
  Transmission Date: 20190711
  Serious: Yes (Other)
  Sender: FDA-Public Use
  Company Number: PHHY2019GB057904

PATIENT
  Sex: Female

DRUGS (2)
  1. COSENTYX [Suspect]
     Active Substance: SECUKINUMAB
     Indication: ARTHRITIS
     Dosage: 150 MG, QW (PRE-FILLED PEN)
     Route: 058
     Dates: start: 20190301
  2. COSENTYX [Suspect]
     Active Substance: SECUKINUMAB
     Dosage: 150 MG, QW (PRE-FILLED PEN)
     Route: 058
     Dates: start: 20190308

REACTIONS (3)
  - Influenza [Recovered/Resolved]
  - Laryngitis [Recovered/Resolved]
  - Lung infection [Recovered/Resolved]
